FAERS Safety Report 23176073 (Version 1)
Quarter: 2023Q4

REPORT INFORMATION
  Report Type: Spontaneous
  Country: FR (occurrence: FR)
  Receive Date: 20231113
  Receipt Date: 20231113
  Transmission Date: 20240109
  Serious: Yes (Other)
  Sender: FDA-Public Use
  Company Number: None

PATIENT
  Age: 26 Year
  Sex: Female
  Weight: 54 kg

DRUGS (2)
  1. RIFATER [Suspect]
     Active Substance: ISONIAZID\PYRAZINAMIDE\RIFAMPIN
     Indication: Tuberculosis
     Dosage: UNK: 5 CP /J
     Route: 048
     Dates: start: 20230619, end: 20230803
  2. ETHAMBUTOL HYDROCHLORIDE [Suspect]
     Active Substance: ETHAMBUTOL HYDROCHLORIDE
     Dosage: 1000 MG: 1/J
     Route: 048
     Dates: start: 20230619, end: 20230803

REACTIONS (2)
  - Neutropenia [Recovered/Resolved with Sequelae]
  - Hepatic cytolysis [Unknown]

NARRATIVE: CASE EVENT DATE: 20230101
